FAERS Safety Report 5385956-5 (Version None)
Quarter: 2007Q3

REPORT INFORMATION
  Report Type: 
  Country: None (occurrence: None)
  Receive Date: 20070712
  Receipt Date: 20070706
  Transmission Date: 20080115
  Serious: Yes (Hospitalization)
  Sender: FDA-Public Use
  Company Number: FR-MERCK-0707FRA00024

PATIENT
  Age: 64 Year
  Sex: Male

DRUGS (7)
  1. FLUINDIONE [Suspect]
     Indication: CAROTID ARTERY DISSECTION
     Route: 048
     Dates: start: 20010101, end: 20070115
  2. FLUINDIONE [Suspect]
     Route: 048
     Dates: start: 20070116, end: 20070212
  3. ZOCOR [Suspect]
     Indication: HYPERCHOLESTEROLAEMIA
     Route: 048
     Dates: start: 20010101
  4. ALLOPURINOL [Concomitant]
     Indication: HYPERURICAEMIA
     Route: 048
  5. PIRACETAM [Concomitant]
     Route: 048
  6. CANDESARTAN [Concomitant]
     Indication: HYPERTENSION
     Route: 048
  7. BUFLOMEDIL [Concomitant]
     Indication: ARTERIAL DISORDER
     Route: 048

REACTIONS (3)
  - GINGIVAL BLEEDING [None]
  - INTERNATIONAL NORMALISED RATIO INCREASED [None]
  - RECTAL HAEMORRHAGE [None]
